FAERS Safety Report 25557043 (Version 1)
Quarter: 2025Q3

REPORT INFORMATION
  Report Type: Spontaneous
  Country: US (occurrence: US)
  Receive Date: 20250715
  Receipt Date: 20250715
  Transmission Date: 20251020
  Serious: Yes (Hospitalization, Other)
  Sender: NOVO NORDISK
  Company Number: US-NOVOPROD-1276095

PATIENT
  Age: 60 Year
  Sex: Female
  Weight: 138.32 kg

DRUGS (8)
  1. OZEMPIC [Suspect]
     Active Substance: SEMAGLUTIDE
     Indication: Obesity
     Dosage: 0.25 MG, QW
     Route: 058
     Dates: start: 20220826, end: 20230113
  2. EGRIFTA [Concomitant]
     Active Substance: TESAMORELIN ACETATE
     Indication: Weight control
  3. GABAPENTIN [Concomitant]
     Active Substance: GABAPENTIN
     Indication: Neuropathy peripheral
     Dates: start: 20230101
  4. ESTRADIOL [Concomitant]
     Active Substance: ESTRADIOL
     Indication: Blood pressure abnormal
     Dates: start: 20200101
  5. ZIPRASIDONE [Concomitant]
     Active Substance: ZIPRASIDONE
     Indication: Depression
     Dates: start: 19980101
  6. TAMSULOSIN [Concomitant]
     Active Substance: TAMSULOSIN
     Indication: Bladder disorder
     Dates: start: 20230101
  7. GLIPIZIDE [Concomitant]
     Active Substance: GLIPIZIDE
     Indication: Cardiac disorder
     Dates: start: 20230101
  8. DOCUSATE [Concomitant]
     Active Substance: DOCUSATE
     Indication: Constipation
     Dates: start: 20230101

REACTIONS (4)
  - Impaired gastric emptying [Not Recovered/Not Resolved]
  - Abdominal pain [Not Recovered/Not Resolved]
  - Diarrhoea [Not Recovered/Not Resolved]
  - Off label use [Unknown]

NARRATIVE: CASE EVENT DATE: 20230101
